FAERS Safety Report 5662654-1 (Version None)
Quarter: 2008Q1

REPORT INFORMATION
  Report Type: 
  Country: None (occurrence: None)
  Receive Date: 20080313
  Receipt Date: 20080310
  Transmission Date: 20080703
  Serious: Yes (Other)
  Sender: FDA-Public Use
  Company Number: PHNU2008DE01162

PATIENT
  Age: 61 Year
  Sex: Male

DRUGS (2)
  1. FLUVASTATIN [Suspect]
     Indication: HYPERCHOLESTEROLAEMIA
     Dosage: 20 MG, QD
     Route: 048
     Dates: start: 20040101, end: 20060901
  2. KARVEZIDE [Concomitant]
     Indication: HYPERTENSION

REACTIONS (9)
  - ARTHRALGIA [None]
  - BLOOD CREATINE PHOSPHOKINASE INCREASED [None]
  - CERVICOBRACHIAL SYNDROME [None]
  - EPICONDYLITIS [None]
  - MUSCLE RIGIDITY [None]
  - MUSCLE SPASMS [None]
  - MYOPATHY [None]
  - PAIN [None]
  - TENOSYNOVITIS [None]
